FAERS Safety Report 14680042 (Version 1)
Quarter: 2018Q1

REPORT INFORMATION
  Report Type: Spontaneous
  Country: KZ (occurrence: KZ)
  Receive Date: 20180326
  Receipt Date: 20180326
  Transmission Date: 20180509
  Serious: Yes (Hospitalization, Other)
  Sender: FDA-Public Use
  Company Number: KZ-JNJFOC-20180333197

PATIENT
  Sex: Female
  Weight: 83 kg

DRUGS (3)
  1. XARELTO [Suspect]
     Active Substance: RIVAROXABAN
     Indication: ATRIAL FIBRILLATION
     Route: 048
     Dates: start: 20180222, end: 20180312
  2. THROMBIN [Suspect]
     Active Substance: THROMBIN
     Indication: PRODUCT USED FOR UNKNOWN INDICATION
     Route: 065
     Dates: start: 20180222, end: 20180312
  3. OMEGASTRON [Concomitant]
     Indication: PROPHYLAXIS AGAINST GASTROINTESTINAL ULCER
     Route: 065
     Dates: start: 20180222

REACTIONS (4)
  - Haemoglobin decreased [Unknown]
  - Faeces discoloured [Unknown]
  - Pallor [Unknown]
  - Small intestinal haemorrhage [Unknown]

NARRATIVE: CASE EVENT DATE: 20180311
